FAERS Safety Report 25064349 (Version 3)
Quarter: 2025Q2

REPORT INFORMATION
  Report Type: Spontaneous
  Country: JP (occurrence: JP)
  Receive Date: 20250311
  Receipt Date: 20250620
  Transmission Date: 20250716
  Serious: Yes (Hospitalization, Other)
  Sender: MERCK SHARP & DOHME LLC
  Company Number: JP-MSD-M2024-47322

PATIENT
  Age: 69 Year
  Sex: Male
  Weight: 50.5 kg

DRUGS (5)
  1. KEYTRUDA [Suspect]
     Active Substance: PEMBROLIZUMAB
     Indication: Lung adenocarcinoma stage II
     Route: 041
     Dates: start: 20250108
  2. KEYTRUDA [Suspect]
     Active Substance: PEMBROLIZUMAB
     Indication: Lung adenocarcinoma stage II
     Route: 041
     Dates: start: 20241030, end: 20241030
  3. CARBOPLATIN [Suspect]
     Active Substance: CARBOPLATIN
     Indication: Lung adenocarcinoma stage II
     Route: 065
  4. PEMETREXED [Suspect]
     Active Substance: PEMETREXED
     Indication: Lung adenocarcinoma stage II
     Route: 065
  5. PEMETREXED [Suspect]
     Active Substance: PEMETREXED
     Indication: Lung adenocarcinoma stage II
     Route: 065
     Dates: start: 202411

REACTIONS (6)
  - Hepatic function abnormal [Recovering/Resolving]
  - Altered state of consciousness [Recovering/Resolving]
  - C-reactive protein increased [Recovered/Resolved]
  - Blood potassium increased [Recovered/Resolved]
  - Pulmonary toxicity [Recovering/Resolving]
  - Cytokine release syndrome [Recovering/Resolving]

NARRATIVE: CASE EVENT DATE: 20241101
